FAERS Safety Report 7548794-0 (Version None)
Quarter: 2011Q2

REPORT INFORMATION
  Report Type: 
  Country: None (occurrence: None)
  Receive Date: 20110615
  Receipt Date: 20110608
  Transmission Date: 20111010
  Serious: Yes (Hospitalization)
  Sender: FDA-Public Use
  Company Number: FR-PFIZER INC-2011130080

PATIENT
  Age: 42 Year
  Sex: Female

DRUGS (4)
  1. PREVISCAN [Suspect]
     Dosage: UNK
     Route: 048
     Dates: start: 20110506, end: 20110511
  2. PANTOPRAZOLE [Suspect]
     Dosage: UNK
     Route: 048
     Dates: end: 20110515
  3. DOTAREM [Suspect]
     Dosage: UNK
     Route: 042
     Dates: start: 20110512, end: 20110512
  4. CELESTONE [Concomitant]

REACTIONS (1)
  - ACUTE GENERALISED EXANTHEMATOUS PUSTULOSIS [None]
